FAERS Safety Report 23326986 (Version 1)
Quarter: 2023Q4

REPORT INFORMATION
  Report Type: Spontaneous
  Country: US (occurrence: None)
  Receive Date: 20231220
  Receipt Date: 20231220
  Transmission Date: 20240110
  Serious: Yes (Life-Threatening)
  Sender: FDA-Public Use
  Company Number: None

PATIENT
  Age: 66 Year
  Sex: Female
  Weight: 75.8 kg

DRUGS (1)
  1. ENFORTUMAB [Suspect]
     Active Substance: ENFORTUMAB
     Indication: Gallbladder cancer metastatic
     Dosage: FREQUENCY : ONCE;?
     Route: 040
     Dates: start: 20231127, end: 20231204

REACTIONS (5)
  - Stevens-Johnson syndrome [None]
  - Toxic epidermal necrolysis [None]
  - Neutropenia [None]
  - Neutropenic colitis [None]
  - Respiratory failure [None]

NARRATIVE: CASE EVENT DATE: 20231207
